FAERS Safety Report 5824185-5 (Version None)
Quarter: 2008Q3

REPORT INFORMATION
  Report Type: 
  Country: None (occurrence: None)
  Receive Date: 20080718
  Receipt Date: 20080612
  Transmission Date: 20090109
  Serious: Yes (Other)
  Sender: FDA-Public Use
  Company Number: US-WYE-H04522508

PATIENT
  Age: 65 Year
  Sex: Male
  Weight: 91.71 kg

DRUGS (4)
  1. ADVIL PM [Suspect]
     Indication: INSOMNIA
     Dosage: 2 CAPLES ONCE, ORAL
     Route: 048
     Dates: start: 20080601, end: 20080601
  2. CALCIUM (CALCIUM) [Concomitant]
  3. FLAXSEED (FLAXSEED) [Concomitant]
  4. MULTIVITAMINS (ASCORBIC ACID/ERGOCALCIFEROL/FOLIC ACID/NICOTINAMIDE/PA [Concomitant]

REACTIONS (2)
  - AGITATION [None]
  - RESTLESSNESS [None]
